FAERS Safety Report 9872019 (Version 2)
Quarter: 2015Q1

REPORT INFORMATION
  Report Type: Spontaneous
  Country: US (occurrence: US)
  Receive Date: 20140205
  Receipt Date: 20150222
  Transmission Date: 20150721
  Serious: No
  Sender: FDA-Public Use
  Company Number: US-ALLERGAN-1117185US

PATIENT
  Age: 65 Year
  Sex: Female

DRUGS (8)
  1. BOTOX COSMETIC [Suspect]
     Active Substance: ONABOTULINUMTOXINA
     Indication: SKIN WRINKLING
     Dosage: 22 UNITS, SINGLE
     Route: 030
     Dates: start: 201408, end: 201408
  2. JUVEDERM VOLUMA XC [Suspect]
     Active Substance: HYALURONIC ACID\LIDOCAINE HYDROCHLORIDE
  3. LOSARTAN [Concomitant]
     Active Substance: LOSARTAN
     Indication: HYPERTENSION
     Dosage: 25 MG, UNK
     Route: 048
  4. BOTOX COSMETIC [Suspect]
     Active Substance: ONABOTULINUMTOXINA
     Indication: SKIN WRINKLING
     Dosage: 37.5 UNITS, SINGLE
     Route: 030
     Dates: start: 20130513, end: 20130513
  5. RESTYLANE [Suspect]
     Active Substance: HYALURONIC ACID
  6. VITAMINS [Concomitant]
     Active Substance: VITAMINS
     Indication: SUPPLEMENTATION THERAPY
  7. BOTOX COSMETIC [Suspect]
     Active Substance: ONABOTULINUMTOXINA
     Dosage: UNK
     Route: 030
     Dates: start: 201011, end: 201011
  8. RADIESSE [Concomitant]
     Active Substance: TRIBASIC CALCIUM PHOSPHATE
     Indication: SKIN WRINKLING
     Dosage: UNK
     Dates: start: 20130513, end: 20130513

REACTIONS (14)
  - Throat irritation [Unknown]
  - Periorbital oedema [Unknown]
  - Injection site pain [Recovered/Resolved]
  - Metamorphopsia [Not Recovered/Not Resolved]
  - Skin wrinkling [Recovered/Resolved]
  - Dysphonia [Unknown]
  - Muscle twitching [Not Recovered/Not Resolved]
  - Swelling face [Recovered/Resolved]
  - Eyelid ptosis [Not Recovered/Not Resolved]
  - Eyelid sensory disorder [Not Recovered/Not Resolved]
  - Skin hyperpigmentation [Recovered/Resolved]
  - Eyelids pruritus [Unknown]
  - Swelling [Recovered/Resolved]
  - Facial paresis [Recovering/Resolving]

NARRATIVE: CASE EVENT DATE: 201011
